FAERS Safety Report 8385644-7 (Version None)
Quarter: 2012Q2

REPORT INFORMATION
  Report Type: 
  Country: None (occurrence: None)
  Receive Date: 20120525
  Receipt Date: 20120521
  Transmission Date: 20120825
  Serious: No
  Sender: FDA-Public Use
  Company Number: US-PFIZER INC-2012084509

PATIENT
  Sex: Female
  Weight: 76.644 kg

DRUGS (3)
  1. FLECTOR [Suspect]
     Dosage: UNK
     Route: 061
  2. FLECTOR [Suspect]
     Indication: ARTHRALGIA
     Dosage: UNK
     Dates: end: 20120301
  3. FLECTOR [Suspect]
     Indication: BURSITIS
     Dosage: UNK, AS NEEDED
     Route: 061

REACTIONS (2)
  - ERYTHEMA [None]
  - PRURITUS [None]
